FAERS Safety Report 24631456 (Version 1)
Quarter: 2024Q4

REPORT INFORMATION
  Report Type: Spontaneous
  Country: IE (occurrence: IE)
  Receive Date: 20241118
  Receipt Date: 20241118
  Transmission Date: 20250115
  Serious: Yes (Hospitalization, Other)
  Sender: MYLAN
  Company Number: IE-MYLANLABS-2024M1073575

PATIENT
  Sex: Male

DRUGS (2)
  1. CLOZARIL [Suspect]
     Active Substance: CLOZAPINE
     Indication: Schizophrenia
     Dosage: UNK
     Route: 048
     Dates: start: 20141010, end: 20240730
  2. CLOZARIL [Suspect]
     Active Substance: CLOZAPINE
     Dosage: UNK (APPROXIMATE DATE: 17-OCT-2024)
     Route: 048
     Dates: end: 202410

REACTIONS (4)
  - Hospitalisation [Unknown]
  - Mental impairment [Unknown]
  - Hypophagia [Unknown]
  - Treatment noncompliance [Unknown]

NARRATIVE: CASE EVENT DATE: 20241031
